FAERS Safety Report 9294977 (Version 2)
Quarter: 2013Q3

REPORT INFORMATION
  Report Type: Spontaneous
  Country: DE (occurrence: DE)
  Receive Date: 20130517
  Receipt Date: 20130829
  Transmission Date: 20140515
  Serious: Yes (Death)
  Sender: FDA-Public Use
  Company Number: DE-ROCHE-1225691

PATIENT
  Age: 31 Year
  Sex: Male
  Weight: 85 kg

DRUGS (2)
  1. ZELBORAF [Suspect]
     Indication: MALIGNANT MELANOMA
     Route: 048
     Dates: start: 20120115, end: 20120530
  2. YERVOY [Concomitant]
     Indication: MALIGNANT MELANOMA
     Route: 065
     Dates: start: 201207

REACTIONS (1)
  - Metastases to central nervous system [Fatal]
